FAERS Safety Report 5495601-6 (Version None)
Quarter: 2007Q4

REPORT INFORMATION
  Report Type: 
  Country: None (occurrence: None)
  Receive Date: 20071015
  Receipt Date: 20061006
  Transmission Date: 20080405
  Serious: Yes (Other)
  Sender: FDA-Public Use
  Company Number: S06-USA-04179-01

PATIENT
  Age: 66 Year
  Sex: Male

DRUGS (6)
  1. LEXAPRO [Suspect]
     Indication: DEPRESSION
     Dosage: 20 MG QD PO
     Route: 048
     Dates: start: 20060922, end: 20061001
  2. LEXAPRO [Suspect]
     Indication: DEPRESSION
     Dosage: 10 MG QD PO
     Route: 048
     Dates: start: 20060801, end: 20060921
  3. MINOXIDIL [Concomitant]
  4. PROPRANOLOL [Concomitant]
  5. GEMFIBROZIL [Concomitant]
  6. ASPIRIN [Concomitant]

REACTIONS (9)
  - DEPRESSION [None]
  - ERECTILE DYSFUNCTION [None]
  - FEELING HOT [None]
  - HYPERSOMNIA [None]
  - MANIA [None]
  - MOUTH BREATHING [None]
  - SUICIDAL IDEATION [None]
  - TREMOR [None]
  - YAWNING [None]
